FAERS Safety Report 6927475-8 (Version None)
Quarter: 2010Q3

REPORT INFORMATION
  Report Type: 
  Country: None (occurrence: None)
  Receive Date: 20100817
  Receipt Date: 20100805
  Transmission Date: 20110219
  Serious: No
  Sender: FDA-Public Use
  Company Number: US-BAYER-201027369NA

PATIENT
  Age: 60 Year
  Sex: Male

DRUGS (2)
  1. NEXAVAR [Suspect]
     Indication: RENAL CELL CARCINOMA
     Dosage: TOTAL DAILY DOSE: 400 MG  UNIT DOSE: 200 MG
     Route: 048
     Dates: start: 20100701
  2. NEXAVAR [Suspect]
     Dosage: AS USED: 200-400 MG  UNIT DOSE: 200 MG
     Route: 048
     Dates: start: 20100701

REACTIONS (6)
  - ARTHRALGIA [None]
  - DRY MOUTH [None]
  - DYSPHONIA [None]
  - FATIGUE [None]
  - GAIT DISTURBANCE [None]
  - MUSCLE TWITCHING [None]
